FAERS Safety Report 4677826-2 (Version None)
Quarter: 2005Q2

REPORT INFORMATION
  Report Type: 
  Country: None (occurrence: None)
  Receive Date: 20050531
  Receipt Date: 20040121
  Transmission Date: 20051028
  Serious: Yes (Other)
  Sender: FDA-Public Use
  Company Number: US-BRISTOL-MYERS SQUIBB COMPANY-12483251

PATIENT
  Age: 57 Year
  Sex: Male

DRUGS (5)
  1. SERZONE [Suspect]
     Indication: DEPRESSION
     Route: 048
     Dates: start: 19980526, end: 20020318
  2. TRICOR [Concomitant]
  3. NAPROXEN [Concomitant]
  4. CELEBREX [Concomitant]
  5. GLUCOTROL XL [Concomitant]

REACTIONS (3)
  - DIABETES MELLITUS NON-INSULIN-DEPENDENT [None]
  - HEPATIC CIRRHOSIS [None]
  - HEPATITIS C [None]
